FAERS Safety Report 5606533-4 (Version None)
Quarter: 2008Q1

REPORT INFORMATION
  Report Type: 
  Country: None (occurrence: None)
  Receive Date: 20080129
  Receipt Date: 20080125
  Transmission Date: 20080703
  Serious: Yes (Other)
  Sender: FDA-Public Use
  Company Number: B0505565A

PATIENT
  Age: 69 Year
  Sex: Male
  Weight: 80 kg

DRUGS (2)
  1. AVODART [Suspect]
     Dates: start: 20071120, end: 20071125
  2. AMOXICLAV [Concomitant]
     Dates: start: 20071120, end: 20071125

REACTIONS (4)
  - ASTHENIA [None]
  - DERMATITIS ALLERGIC [None]
  - PYREXIA [None]
  - RASH [None]
